FAERS Safety Report 9472158 (Version 2)
Quarter: 2013Q4

REPORT INFORMATION
  Report Type: Spontaneous
  Country: IT (occurrence: IT)
  Receive Date: 20130823
  Receipt Date: 20131122
  Transmission Date: 20140711
  Serious: Yes (Hospitalization, Other)
  Sender: FDA-Public Use
  Company Number: IT-ACCORD-019065

PATIENT
  Age: 54 Year
  Sex: Female

DRUGS (5)
  1. SERTRALINE [Suspect]
     Route: 048
     Dates: start: 20130730, end: 20130730
  2. MIRTAZAPINE [Suspect]
     Route: 048
     Dates: start: 20130730, end: 20130730
  3. QUETIAPINE FUMARATE [Suspect]
     Route: 048
     Dates: start: 20130730, end: 20130730
  4. DELORAZEPAM [Suspect]
     Route: 048
     Dates: start: 20130730, end: 20130730
  5. PREGABALIN [Suspect]
     Route: 048
     Dates: start: 20130730, end: 20130730

REACTIONS (4)
  - Electrocardiogram QT prolonged [Recovering/Resolving]
  - Toxicity to various agents [Recovering/Resolving]
  - Drug abuse [Unknown]
  - Intentional self-injury [Unknown]
